FAERS Safety Report 8313655-6 (Version None)
Quarter: 2012Q2

REPORT INFORMATION
  Report Type: 
  Country: None (occurrence: None)
  Receive Date: 20120426
  Receipt Date: 20120424
  Transmission Date: 20120825
  Serious: No
  Sender: FDA-Public Use
  Company Number: US-PFIZER INC-2012036956

PATIENT
  Sex: Male

DRUGS (1)
  1. SUTENT [Suspect]
     Indication: METASTATIC RENAL CELL CARCINOMA
     Dosage: 50 MG, DAILY, 42 DAYS CYCLE
     Dates: start: 20120127

REACTIONS (5)
  - DIARRHOEA [None]
  - HYPERTENSION [None]
  - OROPHARYNGEAL PAIN [None]
  - DYSPHAGIA [None]
  - BLOOD GLUCOSE DECREASED [None]
